FAERS Safety Report 6209602-3 (Version None)
Quarter: 2009Q2

REPORT INFORMATION
  Report Type: 
  Country: None (occurrence: None)
  Receive Date: 20090527
  Receipt Date: 20090513
  Transmission Date: 20091009
  Serious: Yes (Other)
  Sender: FDA-Public Use
  Company Number: 1-18450832

PATIENT
  Sex: Female

DRUGS (10)
  1. CARBAMAZEPINE [Suspect]
     Indication: EPILEPSY
     Dosage: 200 MG TWICE DAILY, ORAL
     Route: 048
  2. CYCLOPHOSPHAMIDE [Suspect]
     Indication: BREAST CANCER METASTATIC
     Dosage: 1,000 MG/(M^2 DAY), 3 CYCLES, INTRAVENOUS
     Route: 042
  3. THIOTEPA [Suspect]
     Indication: BREAST CANCER METASTATIC
     Dosage: 800 MG/(M^2 DAY), 3 CYCLES, INTRAVENOUS
     Route: 042
  4. CARBOPLATIN [Concomitant]
  5. MESNA [Concomitant]
  6. CIPROFLOXACIN [Concomitant]
  7. FLUCONAZOLE [Concomitant]
  8. DEXAMETHASONE [Concomitant]
  9. GRANISETRON HCL [Concomitant]
  10. VIGABATRIN [Suspect]

REACTIONS (4)
  - DRUG CLEARANCE INCREASED [None]
  - NAUSEA [None]
  - POTENTIATING DRUG INTERACTION [None]
  - VOMITING [None]
